FAERS Safety Report 8031370-3 (Version None)
Quarter: 2012Q1

REPORT INFORMATION
  Report Type: 
  Country: None (occurrence: None)
  Receive Date: 20120109
  Receipt Date: 20120106
  Transmission Date: 20120608
  Serious: Yes (Hospitalization, Other)
  Sender: FDA-Public Use
  Company Number: GB-ROCHE-1028093

PATIENT
  Sex: Female
  Weight: 54 kg

DRUGS (2)
  1. METHOTREXATE [Concomitant]
  2. MABTHERA [Suspect]
     Indication: RHEUMATOID ARTHRITIS
     Dates: start: 20070917

REACTIONS (3)
  - NEUTROPENIA [None]
  - PNEUMONIA [None]
  - BONE MARROW FAILURE [None]
